FAERS Safety Report 5822088-3 (Version None)
Quarter: 2008Q3

REPORT INFORMATION
  Report Type: 
  Country: None (occurrence: None)
  Receive Date: 20080722
  Receipt Date: 20080722
  Transmission Date: 20090109
  Serious: No
  Sender: FDA-Public Use
  Company Number: None

PATIENT
  Age: 59 Year
  Sex: Female

DRUGS (2)
  1. FLUTICASONE PROPIONATE [Suspect]
     Indication: ASTHMA
     Dosage: 50 MCG 2 SPRAYS EACH NOSTRIL 1X DAILY
     Dates: start: 20080701
  2. FLUTICASONE PROPIONATE [Suspect]
     Indication: RHINITIS ALLERGIC
     Dosage: 50 MCG 2 SPRAYS EACH NOSTRIL 1X DAILY
     Dates: start: 20080701

REACTIONS (3)
  - DRUG INEFFECTIVE [None]
  - NASAL DISCOMFORT [None]
  - THERAPEUTIC RESPONSE UNEXPECTED WITH DRUG SUBSTITUTION [None]
